FAERS Safety Report 15311635 (Version 1)
Quarter: 2018Q3

REPORT INFORMATION
  Report Type: Spontaneous
  Country: US (occurrence: US)
  Receive Date: 20180823
  Receipt Date: 20180823
  Transmission Date: 20181010
  Serious: No
  Sender: FDA-Public Use
  Company Number: US-COLLEGIUM PHARMACEUTICAL, INC.-2018CGM00150

PATIENT
  Age: 43 Year
  Sex: Male
  Weight: 79.82 kg

DRUGS (8)
  1. XTAMPZA ER [Suspect]
     Active Substance: OXYCODONE
     Indication: CHRONIC IDIOPATHIC PAIN SYNDROME
     Dosage: 36 MG, 2X/DAY EVERY 12 HOURS
     Route: 048
     Dates: start: 20180411, end: 20180502
  2. SECTRAL [Concomitant]
     Active Substance: ACEBUTOLOL HYDROCHLORIDE
     Dosage: 200 MG, 1X/DAY
  3. NOVOLOG [Concomitant]
     Active Substance: INSULIN ASPART
     Dosage: INSULIN PUMP
  4. OXYCODONE HYDROCHLORIDE. [Concomitant]
     Active Substance: OXYCODONE HYDROCHLORIDE
     Dosage: 5 MG, AS NEEDED
  5. DIAZEPAM. [Concomitant]
     Active Substance: DIAZEPAM
     Dosage: 5 MG, 3X/DAY EVERY 8 HOURS
  6. SOMA [Concomitant]
     Active Substance: CARISOPRODOL
     Dosage: 175 MG, AT NIGHT AND IN DAY AS NEEDED
  7. PANTOPRAZOLE SODIUM. [Concomitant]
     Active Substance: PANTOPRAZOLE SODIUM
     Dosage: 20 MG, 1X/DAY AT NIGHT
  8. FLONASE [Concomitant]
     Active Substance: FLUTICASONE PROPIONATE
     Dosage: 1 DOSAGE UNITS, IN EACH NOSTRIL ONCE DAILY
     Route: 045

REACTIONS (6)
  - Hypersensitivity [Recovering/Resolving]
  - Dyshidrotic eczema [Recovering/Resolving]
  - Blister rupture [Recovered/Resolved]
  - Wound [Recovering/Resolving]
  - Product substitution issue [Recovered/Resolved]
  - Drug effect incomplete [Recovered/Resolved]

NARRATIVE: CASE EVENT DATE: 201804
